FAERS Safety Report 9110485 (Version 1)
Quarter: 2013Q1

REPORT INFORMATION
  Report Type: Spontaneous
  Country: US (occurrence: US)
  Receive Date: 20130219
  Receipt Date: 20130219
  Transmission Date: 20140127
  Serious: No
  Sender: FDA-Public Use
  Company Number: US-BRACCO-007734

PATIENT
  Age: 66 Year
  Sex: Male

DRUGS (3)
  1. ISOVUE 370 [Suspect]
     Indication: CATHETERISATION CARDIAC
     Route: 042
     Dates: start: 2012, end: 2012
  2. ISOVUE 370 [Suspect]
     Indication: INVESTIGATION
     Route: 042
     Dates: start: 2012, end: 2012
  3. BETA BLOCKING AGENTS [Concomitant]

REACTIONS (3)
  - Blood pressure decreased [Recovered/Resolved]
  - Heart rate decreased [Recovered/Resolved]
  - Electrocardiogram P wave abnormal [Recovered/Resolved]
